FAERS Safety Report 4854244-5 (Version None)
Quarter: 2005Q4

REPORT INFORMATION
  Report Type: 
  Country: None (occurrence: None)
  Receive Date: 20051213
  Receipt Date: 20051213
  Transmission Date: 20060501
  Serious: Yes (Hospitalization)
  Sender: FDA-Public Use
  Company Number: None

PATIENT
  Age: 73 Year
  Sex: Male
  Weight: 98.8842 kg

DRUGS (2)
  1. WARFARIN SODIUM [Suspect]
     Indication: CARDIAC FAILURE CONGESTIVE
     Dosage: 37.5  MG WEEKLY  PO
     Route: 048
     Dates: start: 20031001, end: 20051129
  2. WARFARIN SODIUM [Suspect]
     Indication: THROMBOSIS PROPHYLAXIS
     Dosage: 37.5  MG WEEKLY  PO
     Route: 048
     Dates: start: 20031001, end: 20051129

REACTIONS (5)
  - INFECTION [None]
  - MENTAL STATUS CHANGES [None]
  - SEROMA [None]
  - SPINAL CORD HAEMORRHAGE [None]
  - URINARY TRACT INFECTION [None]
